FAERS Safety Report 6148923-X (Version None)
Quarter: 2009Q2

REPORT INFORMATION
  Report Type: 
  Country: None (occurrence: None)
  Receive Date: 20090407
  Receipt Date: 20090331
  Transmission Date: 20091009
  Serious: Yes (Other)
  Sender: FDA-Public Use
  Company Number: 189979USA

PATIENT
  Age: 52 Year
  Sex: Female
  Weight: 63.5036 kg

DRUGS (4)
  1. ADDERALL TABLET, 5,7.5,10,12.5,20,30 MG (AMPHETAMINE W DEXTROAMPHETAMI [Suspect]
     Indication: ATTENTION DEFICIT/HYPERACTIVITY DISORDER
     Dosage: 1 TABLET FOUR TIMES DAILY (20 MG (ORAL))
     Route: 048
     Dates: start: 20010101
  2. VENLAFAXINE HCL [Concomitant]
  3. LOVASTATIN [Concomitant]
  4. VICODIN [Concomitant]

REACTIONS (5)
  - CARDIOMEGALY [None]
  - DRUG EFFECT DECREASED [None]
  - HYPERSOMNIA [None]
  - MARITAL PROBLEM [None]
  - SUSPICIOUSNESS [None]
